FAERS Safety Report 9583799 (Version 2)
Quarter: 2014Q1

REPORT INFORMATION
  Report Type: Spontaneous
  Country: US (occurrence: US)
  Receive Date: 20131002
  Receipt Date: 20140228
  Transmission Date: 20141002
  Serious: No
  Sender: FDA-Public Use
  Company Number: US-AMGEN-USASP2013049044

PATIENT
  Age: 50 Year
  Sex: Male
  Weight: 113.38 kg

DRUGS (11)
  1. ENBREL [Suspect]
     Indication: RHEUMATOID ARTHRITIS
     Dosage: 50 MG, QWK
     Route: 058
     Dates: start: 20130601
  2. ENBREL [Suspect]
     Dosage: UNK
     Route: 065
  3. FLEXERIL                           /00428402/ [Concomitant]
     Dosage: 10 MG, UNK
     Route: 048
  4. MOTRIN [Concomitant]
     Dosage: 800 MG, UNK
     Route: 048
  5. METHOTREXATE [Concomitant]
     Dosage: 2.5 MG, UNK
     Route: 048
  6. VITAMIN B-12 [Concomitant]
     Dosage: 500 MUG, UNK
     Route: 048
  7. VITAMIN D3 [Concomitant]
     Dosage: 2000 UNIT, UNK
     Route: 048
  8. CO Q-10 [Concomitant]
     Dosage: UNK
     Route: 048
  9. VITAMIN C                          /00008001/ [Concomitant]
     Dosage: 500 MG, UNK
     Route: 048
  10. FOLIC ACID [Concomitant]
     Dosage: UNK
     Route: 048
  11. OMEGA 3                            /01334101/ [Concomitant]
     Dosage: 1000 MG, UNK
     Route: 048

REACTIONS (6)
  - Pollakiuria [Unknown]
  - Renal pain [Unknown]
  - Arthralgia [Not Recovered/Not Resolved]
  - Musculoskeletal pain [Not Recovered/Not Resolved]
  - Pain in extremity [Not Recovered/Not Resolved]
  - Musculoskeletal stiffness [Not Recovered/Not Resolved]
